FAERS Safety Report 5198388-X (Version None)
Quarter: 2006Q4

REPORT INFORMATION
  Report Type: 
  Country: None (occurrence: None)
  Receive Date: 20061229
  Receipt Date: 20061215
  Transmission Date: 20070319
  Serious: Yes (Hospitalization)
  Sender: FDA-Public Use
  Company Number: 2006BI018507

PATIENT
  Sex: Female

DRUGS (1)
  1. AVONEX [Suspect]
     Indication: DRUG USE FOR UNKNOWN INDICATION
     Dosage: 30 UG QW; IM
     Route: 030
     Dates: start: 20040919, end: 20060801

REACTIONS (4)
  - ASTHENIA [None]
  - BACTERIAL INFECTION [None]
  - FALL [None]
  - LOWER LIMB FRACTURE [None]
